FAERS Safety Report 23874903 (Version 3)
Quarter: 2024Q3

REPORT INFORMATION
  Report Type: Spontaneous
  Country: US (occurrence: US)
  Receive Date: 20240520
  Receipt Date: 20240802
  Transmission Date: 20241017
  Serious: No
  Sender: CALLIDITAS THERAPEUTICS
  Company Number: US-Calliditas-2024CAL00725

PATIENT
  Age: 28 Year
  Sex: Female
  Weight: 58.2 kg

DRUGS (1)
  1. TARPEYO [Suspect]
     Active Substance: BUDESONIDE
     Indication: IgA nephropathy
     Route: 048
     Dates: start: 20231103

REACTIONS (8)
  - Blood pressure increased [Unknown]
  - Headache [Unknown]
  - Vomiting [Unknown]
  - Product dose omission issue [Unknown]
  - Vomiting [Unknown]
  - Hyperacusis [Unknown]
  - Photophobia [Unknown]
  - Malaise [Unknown]
